FAERS Safety Report 16294092 (Version 1)
Quarter: 2019Q2

REPORT INFORMATION
  Report Type: Spontaneous
  Country: US (occurrence: US)
  Receive Date: 20190509
  Receipt Date: 20190509
  Transmission Date: 20190711
  Serious: No
  Sender: FDA-Public Use
  Company Number: US-ROCHE-2140441

PATIENT
  Age: 70 Year
  Sex: Male
  Weight: 106.69 kg

DRUGS (3)
  1. ESBRIET [Suspect]
     Active Substance: PIRFENIDONE
     Indication: PRODUCT USED FOR UNKNOWN INDICATION
     Dosage: ONGOING:NO
     Route: 065
     Dates: start: 201805
  2. ESBRIET [Suspect]
     Active Substance: PIRFENIDONE
     Dosage: 2 PILLS, ONGOING: UNKNOWN
     Route: 065
  3. ESBRIET [Suspect]
     Active Substance: PIRFENIDONE
     Dosage: 3 PILLS, ONGOING: NO
     Route: 065
     Dates: start: 20180602

REACTIONS (6)
  - Confusional state [Unknown]
  - Paraesthesia [Unknown]
  - Headache [Unknown]
  - Pruritus [Unknown]
  - Fatigue [Unknown]
  - Thought blocking [Unknown]
